FAERS Safety Report 8843610 (Version 1)
Quarter: 2012Q4

REPORT INFORMATION
  Report Type: 
  Country: US (occurrence: US)
  Receive Date: 20121016
  Receipt Date: 20121016
  Transmission Date: 20130627
  Serious: Yes (Death, Hospitalization)
  Sender: FDA-Public Use
  Company Number: US-MYLANLABS-2012S1020796

PATIENT
  Age: 92 Year
  Sex: Male

DRUGS (11)
  1. DABIGATRAN ETEXILATE [Suspect]
     Indication: ATRIAL FIBRILLATION
     Dosage: took one dose of 150mg
     Route: 048
  2. PROPAFENONE [Interacting]
     Route: 048
  3. ERYTHROMYCIN [Interacting]
     Dosage: received unknown dose early on in hospital stay
     Route: 065
  4. PREDNISONE [Concomitant]
     Route: 048
  5. OMEPRAZOLE [Concomitant]
     Route: 048
  6. DIGOXIN [Concomitant]
     Route: 048
  7. FINASTERIDE [Concomitant]
     Route: 048
  8. TIOTROPIUM BROMIDE [Concomitant]
     Dosage: once daily
     Route: 055
  9. SYNTHROID [Concomitant]
     Route: 048
  10. FLUTICASONE PROPIONATE W/SALMETEROL [Concomitant]
     Dosage: two puffs twice daily
     Route: 055
  11. FOLIC ACID [Concomitant]
     Route: 048

REACTIONS (2)
  - Gastrointestinal haemorrhage [Fatal]
  - Drug interaction [Fatal]
